FAERS Safety Report 9534759 (Version 1)
Quarter: 2013Q3

REPORT INFORMATION
  Report Type: Spontaneous
  Country: US (occurrence: US)
  Receive Date: 20130918
  Receipt Date: 20130918
  Transmission Date: 20140515
  Serious: No
  Sender: FDA-Public Use
  Company Number: US-PURDUE-USA-2011-0080271

PATIENT
  Sex: Female

DRUGS (2)
  1. BUTRANS [Suspect]
     Indication: PAIN
     Dosage: 10 MCG, Q1H
     Route: 062
     Dates: start: 20111218
  2. OXYCODONE HCL IR CAPSULES [Concomitant]
     Indication: PAIN
     Dosage: TOOK FOR FIRST 3 DAYS ON BUTRANS.UNK
     Dates: start: 20111218, end: 20111220

REACTIONS (3)
  - Nausea [Unknown]
  - Hot flush [Unknown]
  - Drug ineffective [Unknown]
